FAERS Safety Report 7720960-0 (Version None)
Quarter: 2011Q3

REPORT INFORMATION
  Report Type: 
  Country: None (occurrence: None)
  Receive Date: 20110825
  Receipt Date: 20110814
  Transmission Date: 20111222
  Serious: Yes (Death, Hospitalization)
  Sender: FDA-Public Use
  Company Number: 15646672

PATIENT
  Age: 80 Year
  Sex: Female

DRUGS (9)
  1. WARFARIN SODIUM [Suspect]
     Indication: EMBOLISM
     Dosage: 4 MILLIGRAM 1 DAY ORAL
     Route: 048
     Dates: start: 20110215, end: 20110501
  2. SIRAN (ACETYLCYSTEINE) [Concomitant]
  3. VENTOLIN INHALER (SALBUTAMOL) [Concomitant]
  4. APIXABAN [Suspect]
     Indication: EMBOLISM
     Dosage: 5 MILLIGRAM 1 DAY ORAL
     Route: 048
     Dates: start: 20110215, end: 20110501
  5. GASTRO (FAMOTIDINE) [Concomitant]
  6. AEROVENT (IPRATROPIUM BROMIDE) [Concomitant]
  7. ENOXAPARIN SODIUM [Suspect]
     Indication: EMBOLISM
     Dosage: 100 MILLILITERS SC
     Route: 058
     Dates: start: 20110215, end: 20110223
  8. PLACEBO [Suspect]
     Indication: EMBOLISM
     Dates: start: 20110215, end: 20110501
  9. SIMVACOR (SIMVASTATIN) [Concomitant]

REACTIONS (11)
  - PAIN [None]
  - REFUSAL OF TREATMENT BY PATIENT [None]
  - OEDEMA PERIPHERAL [None]
  - ACUTE RESPIRATORY FAILURE [None]
  - HAEMOPTYSIS [None]
  - PNEUMOTHORAX [None]
  - RENAL IMPAIRMENT [None]
  - LUNG ADENOCARCINOMA [None]
  - GENERAL PHYSICAL HEALTH DETERIORATION [None]
  - SINUS TACHYCARDIA [None]
  - PLEURAL EFFUSION [None]
